FAERS Safety Report 9170380 (Version 1)
Quarter: 2013Q1

REPORT INFORMATION
  Report Type: Spontaneous
  Country: US (occurrence: None)
  Receive Date: 20130308
  Receipt Date: 20130308
  Transmission Date: 20140127
  Serious: Yes (Hospitalization)
  Sender: FDA-Public Use
  Company Number: AUR-APL-2013-01971

PATIENT
  Age: 81 Year
  Sex: Female

DRUGS (7)
  1. ATENOLOL (ATENOLOL) [Suspect]
     Indication: HYPERTENSION
     Dates: start: 2008
  2. LISINOPRIL (LISINOPRIL) [Suspect]
     Indication: HYPERTENSION
     Route: 048
     Dates: start: 2010
  3. NEXIUM (ESOMEPRAZOLE MAGNESIUM) [Suspect]
     Indication: GASTROOESOPHAGEAL REFLUX DISEASE
     Route: 048
     Dates: start: 2008
  4. NORVASC (AMLODIPINE BESILATE) [Concomitant]
  5. XANAX (ALPRAZOLAM) [Concomitant]
  6. TYLENOL (PARACETAMOL) [Concomitant]
  7. VITAMIN B12 (CYANOCOBALAMIN) [Concomitant]

REACTIONS (6)
  - Pain in extremity [None]
  - Chest pain [None]
  - Abdominal pain upper [None]
  - Hernia pain [None]
  - Blood count abnormal [None]
  - Body height decreased [None]
